FAERS Safety Report 4679968-4 (Version None)
Quarter: 2005Q2

REPORT INFORMATION
  Report Type: 
  Country: None (occurrence: None)
  Receive Date: 20050602
  Receipt Date: 20050531
  Transmission Date: 20051028
  Serious: Yes (Life-Threatening, Hospitalization, Other)
  Sender: FDA-Public Use
  Company Number: PHFR2005GB01965

PATIENT
  Sex: Female

DRUGS (4)
  1. BACLOFEN [Suspect]
     Indication: MUSCLE SPASMS
     Dosage: 40 MG, QD
     Route: 048
  2. TIZANIDINE HCL [Suspect]
     Indication: MUSCLE SPASMS
     Dosage: 36MG/DAY
     Route: 048
  3. GABAPENTIN [Suspect]
     Indication: PAIN
     Dosage: 400 MG, BID
     Route: 065
  4. BENDROFLUAZIDE [Concomitant]
     Dosage: 2.5MG/DAY
     Route: 048

REACTIONS (9)
  - BLOOD CREATININE INCREASED [None]
  - DRUG LEVEL INCREASED [None]
  - EPILEPSY [None]
  - GLASGOW COMA SCALE ABNORMAL [None]
  - HALLUCINATION [None]
  - LOSS OF CONSCIOUSNESS [None]
  - OVERDOSE [None]
  - RENAL FAILURE ACUTE [None]
  - URINARY TRACT INFECTION [None]
